FAERS Safety Report 8777643 (Version 1)
Quarter: 2012Q4

REPORT INFORMATION
  Report Type: 
  Country: JP (occurrence: JP)
  Receive Date: 20120911
  Receipt Date: 20120911
  Transmission Date: 20130627
  Serious: Yes (Other)
  Sender: FDA-Public Use
  Company Number: JP-PFIZER INC-2012205068

PATIENT
  Age: 37 Year
  Sex: Female

DRUGS (1)
  1. SALAZOPYRIN [Suspect]
     Dosage: 1000 mg, 3x/day
     Route: 048
     Dates: start: 20120814

REACTIONS (2)
  - Gastrointestinal haemorrhage [Recovered/Resolved]
  - Faeces discoloured [Recovered/Resolved]
